FAERS Safety Report 21595910 (Version 6)
Quarter: 2023Q2

REPORT INFORMATION
  Report Type: Report from Study
  Country: US (occurrence: US)
  Receive Date: 20221115
  Receipt Date: 20230608
  Transmission Date: 20230721
  Serious: Yes (Other)
  Sender: FDA-Public Use
  Company Number: US-ABBVIE-4200496

PATIENT
  Age: 65 Year
  Sex: Female

DRUGS (2)
  1. IMBRUVICA [Suspect]
     Active Substance: IBRUTINIB
     Indication: Product used for unknown indication
     Route: 048
     Dates: start: 2020, end: 20221114
  2. IMBRUVICA [Suspect]
     Active Substance: IBRUTINIB
     Indication: Product used for unknown indication
     Route: 048
     Dates: start: 20221115

REACTIONS (14)
  - Cerebrovascular accident [Unknown]
  - Onychoclasis [Unknown]
  - Alopecia [Not Recovered/Not Resolved]
  - Onychomalacia [Unknown]
  - Haemorrhagic diathesis [Unknown]
  - Herpes zoster [Unknown]
  - Increased tendency to bruise [Unknown]
  - Memory impairment [Unknown]
  - Inappropriate schedule of product administration [Unknown]
  - Blindness unilateral [Unknown]
  - Contusion [Recovering/Resolving]
  - Nail disorder [Not Recovered/Not Resolved]
  - Nausea [Unknown]
  - Drug interaction [Unknown]

NARRATIVE: CASE EVENT DATE: 20220601
